FAERS Safety Report 5231019-9 (Version None)
Quarter: 2007Q1

REPORT INFORMATION
  Report Type: 
  Country: None (occurrence: None)
  Receive Date: 20070206
  Receipt Date: 20070131
  Transmission Date: 20070707
  Serious: Yes (Other)
  Sender: FDA-Public Use
  Company Number: GB-GLAXOSMITHKLINE-B0361428A

PATIENT
  Sex: Female

DRUGS (3)
  1. PAROXETINE HYDROCHLORIDE [Suspect]
     Route: 065
     Dates: end: 20030801
  2. ZOPICLONE [Concomitant]
  3. PROTHIADEN [Concomitant]

REACTIONS (13)
  - ABNORMAL DREAMS [None]
  - AGGRESSION [None]
  - ANXIETY [None]
  - ASTHENIA [None]
  - BULIMIA NERVOSA [None]
  - DEPRESSED MOOD [None]
  - DRUG WITHDRAWAL SYNDROME [None]
  - INSOMNIA [None]
  - INTENTIONAL SELF-INJURY [None]
  - IRRITABILITY [None]
  - NEGATIVISM [None]
  - PARANOIA [None]
  - SUICIDAL IDEATION [None]
